FAERS Safety Report 9104851 (Version 1)
Quarter: 2013Q1

REPORT INFORMATION
  Report Type: Spontaneous
  Country: US (occurrence: US)
  Receive Date: 20130220
  Receipt Date: 20130220
  Transmission Date: 20140127
  Serious: Yes (Death)
  Sender: FDA-Public Use
  Company Number: US-SANOFI-AVENTIS-2013SA013219

PATIENT
  Sex: Male

DRUGS (10)
  1. LASIX [Suspect]
     Indication: PRODUCT USED FOR UNKNOWN INDICATION
     Route: 065
  2. ACIPHEX [Concomitant]
  3. ASA [Concomitant]
  4. FISH OIL [Concomitant]
  5. GABAPENTIN [Concomitant]
  6. INSULIN DETEMIR [Concomitant]
  7. NOVOLOG [Concomitant]
  8. LIPITOR /UNK/ [Concomitant]
  9. LOSARTAN [Concomitant]
  10. METOPROLOL [Concomitant]

REACTIONS (1)
  - Myocardial infarction [Fatal]
